FAERS Safety Report 8185288-6 (Version None)
Quarter: 2012Q1

REPORT INFORMATION
  Report Type: 
  Country: None (occurrence: None)
  Receive Date: 20120305
  Receipt Date: 20120227
  Transmission Date: 20120608
  Serious: Yes (Other)
  Sender: FDA-Public Use
  Company Number: CA-JNJFOC-20120214257

PATIENT
  Sex: Male
  Weight: 85 kg

DRUGS (12)
  1. CRESTOR [Concomitant]
  2. DOVONEX [Concomitant]
  3. CLOTRIMAZOLE [Concomitant]
  4. CARBOCAL D [Concomitant]
  5. LOTRIDERM [Concomitant]
     Route: 061
  6. HYDROVAL [Concomitant]
  7. REMICADE [Suspect]
     Indication: ANKYLOSING SPONDYLITIS
     Route: 042
  8. FOLIC ACID [Concomitant]
  9. METHOTREXATE [Concomitant]
  10. OLMESARTAN MEDOXOMIL [Concomitant]
  11. ACTONEL [Concomitant]
  12. ACETAMINOPHEN [Concomitant]

REACTIONS (1)
  - MALIGNANT MELANOMA [None]
